FAERS Safety Report 5784307-1 (Version None)
Quarter: 2008Q2

REPORT INFORMATION
  Report Type: 
  Country: None (occurrence: None)
  Receive Date: 20080605
  Receipt Date: 20080415
  Transmission Date: 20081010
  Serious: No
  Sender: FDA-Public Use
  Company Number: A0718925A

PATIENT
  Age: 25 Year
  Sex: Female

DRUGS (1)
  1. ALLI [Suspect]
     Indication: DRUG USE FOR UNKNOWN INDICATION

REACTIONS (5)
  - ILL-DEFINED DISORDER [None]
  - RECTAL DISCHARGE [None]
  - URINARY TRACT DISORDER [None]
  - URINARY TRACT INFECTION [None]
  - URINE ODOUR ABNORMAL [None]
